FAERS Safety Report 4606316-8 (Version None)
Quarter: 2005Q1

REPORT INFORMATION
  Report Type: 
  Country: None (occurrence: None)
  Receive Date: 20050303
  Receipt Date: 20041230
  Transmission Date: 20050727
  Serious: No
  Sender: FDA-Public Use
  Company Number: 200421241BWH

PATIENT
  Age: 49 Year
  Sex: Male
  Weight: 83.9154 kg

DRUGS (15)
  1. LEVITRA [Suspect]
     Indication: ERECTILE DYSFUNCTION
     Dosage: 20 MG, ONCE, ORAL
     Route: 048
     Dates: start: 20041222
  2. METFORMIN [Concomitant]
  3. LIPITOR [Concomitant]
  4. FISH OIL [Concomitant]
  5. TRICOR [Concomitant]
  6. GLIPIZIDE [Concomitant]
  7. TRAZODONE [Concomitant]
  8. TOPROL-XL [Concomitant]
  9. ASPIRIN [Concomitant]
  10. ACTOS [Concomitant]
  11. CLONAZEPAM [Concomitant]
  12. ADVAIR DISKUS 100/50 [Concomitant]
  13. ALBUTEROL [Concomitant]
  14. COMBIVENT [Concomitant]
  15. CARISOPRODOL [Concomitant]

REACTIONS (1)
  - ERECTILE DYSFUNCTION [None]
